FAERS Safety Report 6507024-9 (Version None)
Quarter: 2009Q4

REPORT INFORMATION
  Report Type: 
  Country: None (occurrence: None)
  Receive Date: 20091221
  Receipt Date: 20091214
  Transmission Date: 20100525
  Serious: Yes (Hospitalization, Other)
  Sender: FDA-Public Use
  Company Number: US-ELI_LILLY_AND_COMPANY-US200912003500

PATIENT
  Sex: Female
  Weight: 49.887 kg

DRUGS (5)
  1. HUMALOG [Suspect]
     Indication: DIABETES MELLITUS
  2. HUMALOG [Suspect]
     Dosage: UNK, UNKNOWN
  3. LANTUS [Concomitant]
  4. ENZYMES [Concomitant]
     Indication: PANCREATICODUODENECTOMY
  5. ANTIHYPERTENSIVES [Concomitant]
     Indication: HYPERTENSION

REACTIONS (11)
  - BLOOD GLUCOSE DECREASED [None]
  - BLOOD GLUCOSE INCREASED [None]
  - BONE DENSITY DECREASED [None]
  - COLD SWEAT [None]
  - DRUG HYPERSENSITIVITY [None]
  - DRUG INEFFECTIVE [None]
  - FOOD ALLERGY [None]
  - HOSPITALISATION [None]
  - PNEUMONIA [None]
  - SEPSIS [None]
  - WEIGHT DECREASED [None]
